FAERS Safety Report 7774281-0 (Version None)
Quarter: 2011Q3

REPORT INFORMATION
  Report Type: 
  Country: None (occurrence: None)
  Receive Date: 20110923
  Receipt Date: 20110913
  Transmission Date: 20111222
  Serious: Yes (Other)
  Sender: FDA-Public Use
  Company Number: US-US-EMD SERONO, INC.-7066811

PATIENT
  Sex: Male
  Weight: 64 kg

DRUGS (2)
  1. REBIF [Suspect]
     Indication: PRODUCT USED FOR UNKNOWN INDICATION
     Route: 058
     Dates: start: 20090911
  2. IBUPROFEN [Concomitant]

REACTIONS (2)
  - JOINT SWELLING [None]
  - NEUROENDOCRINE CARCINOMA [None]
